FAERS Safety Report 7617634-3 (Version None)
Quarter: 2011Q3

REPORT INFORMATION
  Report Type: 
  Country: None (occurrence: None)
  Receive Date: 20110718
  Receipt Date: 20110707
  Transmission Date: 20111222
  Serious: Yes (Other)
  Sender: FDA-Public Use
  Company Number: CA-JNJFOC-20110704070

PATIENT
  Sex: Female
  Weight: 139 kg

DRUGS (9)
  1. OTHER THERAPEUTIC MEDICATION [Concomitant]
     Dosage: ^LANTIS^ 35 U
     Route: 058
  2. ZOCOR [Concomitant]
     Route: 048
  3. VITAMIN B-12 [Concomitant]
     Dosage: TWO 100MG TABS EVERY MORNING
     Route: 048
  4. OTHER THERAPEUTIC MEDICATION [Concomitant]
     Dosage: 1 TAB DAILY
     Route: 048
  5. INFLIXIMAB [Suspect]
     Indication: CROHN'S DISEASE
     Route: 042
     Dates: start: 20090201
  6. IMURAN [Concomitant]
     Route: 048
  7. WARFARIN SODIUM [Concomitant]
     Dosage: 8-9 MG DAILY
     Route: 048
  8. METFORMIN HCL [Concomitant]
     Dosage: 500MG, 5 TABS DAILY
     Route: 048
  9. RAMIPRIL [Concomitant]
     Route: 048

REACTIONS (2)
  - SYNCOPE [None]
  - HEART RATE INCREASED [None]
